FAERS Safety Report 9448200 (Version 1)
Quarter: 2013Q3

REPORT INFORMATION
  Report Type: Spontaneous
  Country: US (occurrence: None)
  Receive Date: 20130807
  Receipt Date: 20130807
  Transmission Date: 20140515
  Serious: Yes (Other)
  Sender: FDA-Public Use
  Company Number: None

PATIENT
  Sex: Female
  Weight: 60.78 kg

DRUGS (1)
  1. LEVETIRACETAM [Suspect]
     Dosage: 500MG BID ORAL
     Route: 048
     Dates: start: 201304, end: 201307

REACTIONS (2)
  - Convulsion [None]
  - Headache [None]
